FAERS Safety Report 17225991 (Version 1)
Quarter: 2020Q1

REPORT INFORMATION
  Report Type: Spontaneous
  Country: AU (occurrence: AU)
  Receive Date: 20200102
  Receipt Date: 20200102
  Transmission Date: 20200409
  Serious: Yes (Death)
  Sender: FDA-Public Use
  Company Number: AU-MYLANLABS-2019M1133030

PATIENT
  Age: 63 Year
  Sex: Male

DRUGS (1)
  1. CLOZARIL [Suspect]
     Active Substance: CLOZAPINE
     Indication: SCHIZOPHRENIA
     Dosage: 600 MILLIGRAM
     Route: 048
     Dates: start: 19980403

REACTIONS (1)
  - Death [Fatal]

NARRATIVE: CASE EVENT DATE: 20191206
